FAERS Safety Report 12039859 (Version 1)
Quarter: 2016Q1

REPORT INFORMATION
  Report Type: Spontaneous
  Country: DE (occurrence: DE)
  Receive Date: 20160208
  Receipt Date: 20160208
  Transmission Date: 20160526
  Serious: Yes (Congenital Anomaly, Other)
  Sender: FDA-Public Use
  Company Number: DE-AUROBINDO-AUR-APL-2016-00961

PATIENT
  Age: 1 Day
  Sex: Male
  Weight: 2.57 kg

DRUGS (6)
  1. DOMINAL                            /00002701/ [Suspect]
     Active Substance: ASPIRIN
     Dosage: 40 MG, DAILY STEP TO STEP
     Route: 064
  2. LYRICA [Concomitant]
     Active Substance: PREGABALIN
     Indication: ANXIETY DISORDER
     Dosage: 300 MG, DAILY
     Route: 064
  3. DOMINAL                            /00002701/ [Suspect]
     Active Substance: ASPIRIN
     Indication: ANXIETY DISORDER
     Dosage: 240 MG, DAILY
     Route: 064
     Dates: start: 20140914, end: 20150615
  4. TAVOR (LORAZEPAM) [Concomitant]
     Active Substance: LORAZEPAM
     Indication: ANXIETY DISORDER
     Dosage: ON DEMAND
     Route: 064
     Dates: start: 20140918, end: 20150615
  5. ESCITALOPRAM [Suspect]
     Active Substance: ESCITALOPRAM OXALATE
     Indication: DEPRESSION
     Dosage: 10 MG, DAILY
     Route: 064
     Dates: start: 20140914, end: 20150615
  6. METAMIZOL                          /06276702/ [Concomitant]
     Active Substance: METAMIZOLE
     Indication: HEADACHE
     Dosage: 500 MG, DAILY
     Route: 064
     Dates: start: 20140918, end: 20150615

REACTIONS (3)
  - Hypospadias [Not Recovered/Not Resolved]
  - Small for dates baby [Not Recovered/Not Resolved]
  - Foetal exposure during pregnancy [Not Recovered/Not Resolved]

NARRATIVE: CASE EVENT DATE: 20150615
